FAERS Safety Report 21094065 (Version 1)
Quarter: 2022Q3

REPORT INFORMATION
  Report Type: Spontaneous
  Country: CA (occurrence: CA)
  Receive Date: 20220718
  Receipt Date: 20220718
  Transmission Date: 20221027
  Serious: Yes (Other)
  Sender: FDA-Public Use
  Company Number: CA-TEVA-2022-CA-2054424

PATIENT
  Age: 52 Year
  Sex: Female

DRUGS (2)
  1. BUDESONIDE [Suspect]
     Active Substance: BUDESONIDE
     Indication: Product used for unknown indication
     Route: 065
  2. VEDOLIZUMAB [Suspect]
     Active Substance: VEDOLIZUMAB
     Indication: Crohn^s disease
     Route: 042

REACTIONS (11)
  - Abdominal pain [Unknown]
  - Arthralgia [Unknown]
  - Colitis [Unknown]
  - Defaecation urgency [Unknown]
  - Diarrhoea [Unknown]
  - Fatigue [Unknown]
  - Frequent bowel movements [Unknown]
  - Nausea [Unknown]
  - Rectal haemorrhage [Unknown]
  - Drug ineffective [Unknown]
  - Off label use [Unknown]
